FAERS Safety Report 7158246-8 (Version None)
Quarter: 2010Q4

REPORT INFORMATION
  Report Type: 
  Country: None (occurrence: None)
  Receive Date: 20101214
  Receipt Date: 20100330
  Transmission Date: 20110411
  Serious: No
  Sender: FDA-Public Use
  Company Number: US-ASTRAZENECA-2010SE14044

PATIENT
  Sex: Male
  Weight: 68 kg

DRUGS (13)
  1. CRESTOR [Suspect]
     Indication: BLOOD CHOLESTEROL
     Route: 048
  2. ATENOLOL [Concomitant]
     Indication: CARDIAC DISORDER
  3. DIGOXIN [Concomitant]
     Indication: CARDIAC DISORDER
  4. GLIPIZIDE [Concomitant]
     Indication: DIABETES MELLITUS
  5. LACTANOSE [Concomitant]
  6. ONGLYZA [Concomitant]
     Indication: DIABETES MELLITUS
  7. PROTONIX [Concomitant]
     Indication: GASTROINTESTINAL PAIN
  8. SYNTHROID [Concomitant]
     Indication: THYROIDITIS
  9. VASOTEC [Concomitant]
     Indication: CARDIAC DISORDER
  10. METFORMIN [Concomitant]
     Indication: DIABETES MELLITUS
  11. COUMADIN [Concomitant]
  12. FLOMAX [Concomitant]
     Indication: URINARY TRACT DISORDER
  13. SPIRALACTONE [Concomitant]
     Indication: CARDIAC DISORDER

REACTIONS (2)
  - HIGH DENSITY LIPOPROTEIN DECREASED [None]
  - LOW DENSITY LIPOPROTEIN DECREASED [None]
